FAERS Safety Report 13825163 (Version 1)
Quarter: 2017Q3

REPORT INFORMATION
  Report Type: Spontaneous
  Country: ES (occurrence: ES)
  Receive Date: 20170802
  Receipt Date: 20170802
  Transmission Date: 20171127
  Serious: Yes (Other)
  Sender: FDA-Public Use
  Company Number: ES-EISAI MEDICAL RESEARCH-EC-2017-029714

PATIENT
  Age: 74 Year
  Sex: Female
  Weight: 72 kg

DRUGS (1)
  1. SALAGEN [Suspect]
     Active Substance: PILOCARPINE HYDROCHLORIDE
     Indication: DRY MOUTH
     Dosage: UNKNOWN
     Route: 048
     Dates: start: 20110719, end: 20170624

REACTIONS (1)
  - Hallucination, visual [Recovered/Resolved]

NARRATIVE: CASE EVENT DATE: 201706
